FAERS Safety Report 10279633 (Version 3)
Quarter: 2015Q1

REPORT INFORMATION
  Report Type: Report from Study
  Country: CA (occurrence: CA)
  Receive Date: 20140707
  Receipt Date: 20150105
  Transmission Date: 20150720
  Serious: Yes (Other)
  Sender: FDA-Public Use
  Company Number: CA-AMGEN-CANSP2014044224

PATIENT
  Age: 17 Year
  Sex: Female
  Weight: 54.3 kg

DRUGS (4)
  1. ENBREL [Suspect]
     Active Substance: ETANERCEPT
     Indication: HLA-B GENE STATUS ASSAY
  2. ENBREL [Suspect]
     Active Substance: ETANERCEPT
     Indication: JUVENILE IDIOPATHIC ARTHRITIS
     Dosage: 50 MG, QWK
     Route: 058
     Dates: start: 20140502, end: 201408
  3. ALESSE 28 [Concomitant]
     Active Substance: ETHINYL ESTRADIOL\LEVONORGESTREL
     Dosage: UNK
  4. ENBREL [Suspect]
     Active Substance: ETANERCEPT
     Indication: RHEUMATOID ARTHRITIS

REACTIONS (16)
  - Fibromyalgia [Unknown]
  - Injection site induration [Not Recovered/Not Resolved]
  - Drug hypersensitivity [Recovering/Resolving]
  - Injection site pruritus [Recovering/Resolving]
  - Pruritus [Not Recovered/Not Resolved]
  - Musculoskeletal stiffness [Unknown]
  - Injection site reaction [Recovered/Resolved]
  - Angioedema [Recovered/Resolved]
  - Injection site warmth [Recovering/Resolving]
  - Arthralgia [Unknown]
  - Injection site discolouration [Not Recovered/Not Resolved]
  - Injection site erythema [Recovered/Resolved]
  - Joint swelling [Unknown]
  - Injection site swelling [Recovered/Resolved]
  - Activities of daily living impaired [Unknown]
  - Synovitis [Unknown]

NARRATIVE: CASE EVENT DATE: 2014
